FAERS Safety Report 21168928 (Version 1)
Quarter: 2022Q3

REPORT INFORMATION
  Report Type: Other
  Country: None (occurrence: US)
  Receive Date: 20220803
  Receipt Date: 20220803
  Transmission Date: 20221027
  Serious: Yes (Hospitalization, Other)
  Sender: FDA-Public Use
  Company Number: US-MLMSERVICE-20220714-3674820-1

PATIENT
  Age: 29 Year
  Sex: Male

DRUGS (1)
  1. NITROUS OXIDE [Suspect]
     Active Substance: NITROUS OXIDE
     Indication: Substance use
     Route: 055

REACTIONS (3)
  - Myelopathy [Unknown]
  - Subacute combined cord degeneration [Unknown]
  - Drug abuse [Unknown]
